FAERS Safety Report 8804575 (Version 3)
Quarter: 2012Q4

REPORT INFORMATION
  Report Type: 
  Country: US (occurrence: US)
  Receive Date: 20120923
  Receipt Date: 20121010
  Transmission Date: 20130627
  Serious: Yes (Other)
  Sender: FDA-Public Use
  Company Number: US-009507513-1209USA001930

PATIENT
  Age: 56 None
  Sex: Female

DRUGS (2)
  1. PEGINTRON [Suspect]
     Indication: HEPATITIS C
     Dosage: UNK
     Dates: start: 20120831, end: 20120903
  2. REBETOL [Suspect]
     Indication: HEPATITIS C
     Dosage: UNK
     Dates: start: 20120901, end: 20120903

REACTIONS (16)
  - Syncope [Unknown]
  - Fall [Unknown]
  - Blood pressure decreased [Unknown]
  - Dysphagia [Unknown]
  - Feeling cold [Unknown]
  - Anger [Unknown]
  - Eating disorder [Unknown]
  - Ocular hyperaemia [Unknown]
  - Limb operation [Unknown]
  - Chills [Unknown]
  - Pyrexia [Unknown]
  - Diarrhoea [Unknown]
  - Headache [Unknown]
  - Depression [Unknown]
  - Hypotension [Unknown]
  - Depression [Unknown]
